FAERS Safety Report 5384125-2 (Version None)
Quarter: 2007Q3

REPORT INFORMATION
  Report Type: 
  Country: None (occurrence: None)
  Receive Date: 20070711
  Receipt Date: 20070628
  Transmission Date: 20080115
  Serious: Yes (Other)
  Sender: FDA-Public Use
  Company Number: IE-ASTRAZENECA-2007GB01356

PATIENT
  Sex: Male

DRUGS (5)
  1. SEROQUEL [Suspect]
     Route: 048
  2. SEROQUEL [Suspect]
     Route: 048
     Dates: start: 20070601
  3. SEROXAT [Concomitant]
  4. DIAZEPAM [Concomitant]
  5. FLURAZEPAM [Concomitant]

REACTIONS (4)
  - DRY MOUTH [None]
  - HAEMOPTYSIS [None]
  - HAEMORRHAGE [None]
  - HYPERPHAGIA [None]
